FAERS Safety Report 25988833 (Version 1)
Quarter: 2025Q4

REPORT INFORMATION
  Report Type: Spontaneous
  Country: GB (occurrence: GB)
  Receive Date: 20251103
  Receipt Date: 20251103
  Transmission Date: 20260117
  Serious: Yes (Other)
  Sender: MICRO LABS LIMITED
  Company Number: GB-MHRA-EMIS-4331-819e53ed-ee53-476f-98c8-9710d575365e

PATIENT
  Age: 42 Year
  Sex: Male
  Weight: 74 kg

DRUGS (4)
  1. ATORVASTATIN [Suspect]
     Active Substance: ATORVASTATIN
     Indication: Product used for unknown indication
  2. CLOPIDOGREL [Concomitant]
     Active Substance: CLOPIDOGREL BISULFATE
     Indication: Product used for unknown indication
     Dosage: OD
  3. LANSOPRAZOLE [Concomitant]
     Active Substance: LANSOPRAZOLE
     Indication: Product used for unknown indication
     Dosage: OD
  4. Diclofenac diethylammonium 1.16% gel [Concomitant]
     Indication: Product used for unknown indication
     Dosage: APPLY THREE OR FOUR TIMES A DAY
     Dates: start: 20250722, end: 20250903

REACTIONS (2)
  - Transient ischaemic attack [Unknown]
  - Brain fog [Recovered/Resolved]
